FAERS Safety Report 18219063 (Version 2)
Quarter: 2020Q4

REPORT INFORMATION
  Report Type: Spontaneous
  Country: US (occurrence: US)
  Receive Date: 20200901
  Receipt Date: 20201211
  Transmission Date: 20210113
  Serious: Yes (Hospitalization, Other)
  Sender: FDA-Public Use
  Company Number: US-ROCHE-2668108

PATIENT
  Age: 67 Year
  Sex: Female
  Weight: 66.8 kg

DRUGS (4)
  1. ACTIVASE [Suspect]
     Active Substance: ALTEPLASE
     Dosage: ONE HOUR INFUSION X 1. ONGOING: NO
     Route: 041
     Dates: start: 20200826, end: 20200826
  2. ACTIVASE [Suspect]
     Active Substance: ALTEPLASE
     Indication: CEREBROVASCULAR ACCIDENT
     Dosage: BOLUS DOSE X 1; ONGOING: NO
     Route: 040
     Dates: start: 20200826, end: 20200826
  3. ENALAPRIL [Concomitant]
     Active Substance: ENALAPRIL
     Indication: HYPERTENSION
     Route: 048
  4. AMLODIPINE [Concomitant]
     Active Substance: AMLODIPINE BESYLATE
     Indication: HYPERTENSION
     Route: 048

REACTIONS (5)
  - Haematoma [Unknown]
  - Headache [Unknown]
  - Hemiparesis [Unknown]
  - Haemorrhagic transformation stroke [Not Recovered/Not Resolved]
  - Suspected product quality issue [Unknown]

NARRATIVE: CASE EVENT DATE: 20200826
